FAERS Safety Report 5518004-4 (Version None)
Quarter: 2007Q4

REPORT INFORMATION
  Report Type: 
  Country: None (occurrence: None)
  Receive Date: 20071115
  Receipt Date: 20071114
  Transmission Date: 20080405
  Serious: Yes (Death, Other)
  Sender: FDA-Public Use
  Company Number: PL-BRISTOL-MYERS SQUIBB COMPANY-13977277

PATIENT
  Age: 47 Year
  Sex: Male

DRUGS (1)
  1. STAVUDINE [Suspect]

REACTIONS (3)
  - BURKITT'S LYMPHOMA [None]
  - MYCOBACTERIAL INFECTION [None]
  - PNEUMOCYSTIS JIROVECI PNEUMONIA [None]
